FAERS Safety Report 4704345-7 (Version None)
Quarter: 2005Q2

REPORT INFORMATION
  Report Type: 
  Country: None (occurrence: None)
  Receive Date: 20050630
  Receipt Date: 20050622
  Transmission Date: 20051028
  Serious: Yes (Other)
  Sender: FDA-Public Use
  Company Number: US-JNJFOC-20050606298

PATIENT
  Sex: Female
  Weight: 80.74 kg

DRUGS (22)
  1. INFLIXIMAB [Suspect]
     Indication: RHEUMATOID ARTHRITIS
     Route: 042
  2. METHOTREXATE [Concomitant]
  3. VIOXX [Concomitant]
  4. DONNATAL [Concomitant]
  5. DONNATAL [Concomitant]
  6. DONNATAL [Concomitant]
  7. DONNATAL [Concomitant]
  8. PREMARIN [Concomitant]
  9. RESTORIL [Concomitant]
     Dosage: AT BEDTIME
  10. DIAZIDE [Concomitant]
  11. FOLIC ACID [Concomitant]
  12. TYLENOL PM [Concomitant]
     Route: 049
  13. TYLENOL PM [Concomitant]
     Route: 049
  14. ASPIRIN [Concomitant]
  15. MULTI-VITAMIN [Concomitant]
  16. MULTI-VITAMIN [Concomitant]
  17. MULTI-VITAMIN [Concomitant]
  18. MULTI-VITAMIN [Concomitant]
  19. MULTI-VITAMIN [Concomitant]
  20. MULTI-VITAMIN [Concomitant]
  21. MULTI-VITAMIN [Concomitant]
  22. MULTI-VITAMIN [Concomitant]

REACTIONS (1)
  - SQUAMOUS CELL CARCINOMA [None]
